FAERS Safety Report 5727114-8 (Version None)
Quarter: 2008Q2

REPORT INFORMATION
  Report Type: 
  Country: None (occurrence: None)
  Receive Date: 20080505
  Receipt Date: 20080421
  Transmission Date: 20081010
  Serious: Yes (Disabling, Other)
  Sender: FDA-Public Use
  Company Number: US-BAYER-200820992NA

PATIENT
  Sex: Male

DRUGS (11)
  1. MAGNEVIST [Suspect]
     Indication: NUCLEAR MAGNETIC RESONANCE IMAGING
     Dates: start: 20060315, end: 20060315
  2. MAGNEVIST [Suspect]
     Dates: start: 20060705, end: 20060705
  3. OMNISCAN [Suspect]
     Indication: NUCLEAR MAGNETIC RESONANCE IMAGING
     Dates: start: 20060402, end: 20060402
  4. OMNISCAN [Suspect]
     Dates: start: 20060404, end: 20060404
  5. OMNISCAN [Suspect]
     Dates: start: 20060424, end: 20060424
  6. OMNISCAN [Suspect]
     Dates: start: 20060519, end: 20060519
  7. OMNISCAN [Suspect]
     Dates: start: 20060616, end: 20060616
  8. OMNISCAN [Suspect]
     Dates: start: 20060807, end: 20060807
  9. OMNISCAN [Suspect]
     Dates: start: 20060830, end: 20060830
  10. OMNISCAN [Suspect]
     Dates: start: 20061016, end: 20061016
  11. OMNISCAN [Suspect]
     Dates: start: 20061113, end: 20061113

REACTIONS (8)
  - ANXIETY [None]
  - EMOTIONAL DISTRESS [None]
  - FIBROSIS [None]
  - INJURY [None]
  - NEPHROGENIC SYSTEMIC FIBROSIS [None]
  - PAIN [None]
  - SCAR [None]
  - SKIN FIBROSIS [None]
